FAERS Safety Report 5829335-2 (Version None)
Quarter: 2008Q3

REPORT INFORMATION
  Report Type: 
  Country: None (occurrence: None)
  Receive Date: 20080731
  Receipt Date: 20080723
  Transmission Date: 20090109
  Serious: Yes (Hospitalization)
  Sender: FDA-Public Use
  Company Number: NO-WYE-G01915908

PATIENT
  Sex: Female

DRUGS (8)
  1. EFFEXOR [Suspect]
     Indication: DEPRESSION
     Route: 048
     Dates: start: 20060101
  2. PANTOPRAZOLE SODIUM [Concomitant]
     Indication: OESOPHAGITIS
     Route: 048
     Dates: start: 20080601
  3. ALBYL-E [Interacting]
     Indication: THROMBOSIS PROPHYLAXIS
     Route: 048
     Dates: start: 20060101, end: 20080709
  4. AMARYL [Concomitant]
     Indication: DIABETES MELLITUS
     Route: 048
     Dates: start: 20080601
  5. VALLERGAN [Concomitant]
     Indication: INSOMNIA
     Route: 048
     Dates: start: 20080601
  6. FRAGMIN [Interacting]
     Indication: THROMBOSIS PROPHYLAXIS
     Dosage: 5000 IU
     Route: 058
     Dates: start: 20080601
  7. TRUXAL [Concomitant]
     Indication: RESTLESSNESS
     Route: 048
  8. SELO-ZOK [Concomitant]
     Indication: HYPERTENSION
     Route: 048

REACTIONS (3)
  - DRUG INTERACTION [None]
  - MELAENA [None]
  - OESOPHAGITIS ULCERATIVE [None]
